FAERS Safety Report 20118700 (Version 7)
Quarter: 2022Q3

REPORT INFORMATION
  Report Type: Other
  Country: GB (occurrence: GB)
  Receive Date: 20211126
  Receipt Date: 20220916
  Transmission Date: 20221027
  Serious: Yes (Other)
  Sender: FDA-Public Use
  Company Number: None

PATIENT
  Age: 52 Year
  Sex: Male

DRUGS (58)
  1. RANITIDINE [Suspect]
     Active Substance: RANITIDINE
     Indication: Oesophagitis
     Dosage: UNK (RANITIDINE HYDROCHLORIDE)
     Route: 065
  2. RANITIDINE [Suspect]
     Active Substance: RANITIDINE
     Indication: Barrett^s oesophagus
     Dosage: UNK (RANITIDINE HYDROCHLORIDE)
     Route: 065
  3. RANITIDINE [Suspect]
     Active Substance: RANITIDINE
     Dosage: UNK (RANITIDINE)
     Route: 065
  4. RANITIDINE [Suspect]
     Active Substance: RANITIDINE
     Dosage: UNK (RANITIDINE)
     Route: 065
  5. RANITIDINE [Suspect]
     Active Substance: RANITIDINE
     Dosage: UNK (RANITIDINE)
     Route: 065
  6. RANITIDINE [Suspect]
     Active Substance: RANITIDINE
     Dosage: UNK (RANITIDINE)
     Route: 065
  7. RANITIDINE [Suspect]
     Active Substance: RANITIDINE
     Dosage: UNK (RANITIDINE HYDROCHLORIDE) TABLET
     Route: 065
  8. RANITIDINE [Suspect]
     Active Substance: RANITIDINE
     Dosage: UNK; TABLET
     Route: 065
  9. RANITIDINE [Suspect]
     Active Substance: RANITIDINE
     Dosage: UNK; TABLET
     Route: 065
  10. RANITIDINE [Suspect]
     Active Substance: RANITIDINE
     Dosage: UNK
     Route: 065
  11. RANITIDINE [Suspect]
     Active Substance: RANITIDINE
     Dosage: UNK
     Route: 065
  12. RANITIDINE [Suspect]
     Active Substance: RANITIDINE
     Dosage: UNK
     Route: 065
  13. RANITIDINE [Suspect]
     Active Substance: RANITIDINE
     Dosage: UNK, TABLET (UNCOATED, ORAL)
     Route: 048
  14. DOMPERIDONE [Suspect]
     Active Substance: DOMPERIDONE
     Indication: Barrett^s oesophagus
     Dosage: UNK
     Route: 065
  15. DOMPERIDONE [Suspect]
     Active Substance: DOMPERIDONE
     Dosage: UNK
     Route: 065
  16. DOMPERIDONE [Suspect]
     Active Substance: DOMPERIDONE
     Dosage: UNK
     Route: 065
  17. DOMPERIDONE [Suspect]
     Active Substance: DOMPERIDONE
     Dosage: UNK
     Route: 065
  18. DOMPERIDONE [Suspect]
     Active Substance: DOMPERIDONE
     Dosage: UNK,(TABLET)
     Route: 065
  19. ETORICOXIB [Suspect]
     Active Substance: ETORICOXIB
     Indication: Product used for unknown indication
     Dosage: UNK (FILM-COATED TABLET)
     Route: 065
  20. ETORICOXIB [Suspect]
     Active Substance: ETORICOXIB
     Dosage: UNK
     Route: 048
  21. ETORICOXIB [Suspect]
     Active Substance: ETORICOXIB
     Dosage: UNK (FILM-COATED TABLET)
     Route: 048
  22. ETORICOXIB [Suspect]
     Active Substance: ETORICOXIB
     Dosage: UNK
     Route: 048
  23. ETORICOXIB [Suspect]
     Active Substance: ETORICOXIB
     Dosage: UNK
     Route: 048
  24. ETORICOXIB [Suspect]
     Active Substance: ETORICOXIB
     Dosage: UNK
     Route: 048
  25. ETORICOXIB [Suspect]
     Active Substance: ETORICOXIB
     Dosage: UNK (TABLET)
     Route: 048
  26. ETORICOXIB [Suspect]
     Active Substance: ETORICOXIB
     Dosage: UNK, (FILM-COATED TABLET)
     Route: 065
  27. ETORICOXIB [Suspect]
     Active Substance: ETORICOXIB
     Dosage: UNK, (FILM-COATED TABLET)
     Route: 065
  28. ETORICOXIB [Suspect]
     Active Substance: ETORICOXIB
     Dosage: UNK
     Route: 065
  29. COCODAMOL [Suspect]
     Active Substance: ACETAMINOPHEN\CODEINE PHOSPHATE
     Indication: Product used for unknown indication
     Dosage: UNK (CODEINE PHOSPHATE 30 MG/ PARACETAMOL 500 MG) TABLET
     Route: 065
  30. COCODAMOL [Suspect]
     Active Substance: ACETAMINOPHEN\CODEINE PHOSPHATE
     Dosage: UNK (CODEINE PHOSPHATE 30 MG/ PARACETAMOL 500 MG) EFFERVESCENT TABLET
     Route: 065
  31. COCODAMOL [Suspect]
     Active Substance: ACETAMINOPHEN\CODEINE PHOSPHATE
     Dosage: UNK CO-CODAMOL (CODEINE PHOSPHATE 30 MG/ PARACETAMOL 500 MG) TABLET
     Route: 048
  32. COCODAMOL [Suspect]
     Active Substance: ACETAMINOPHEN\CODEINE PHOSPHATE
     Dosage: UNK; CO-CODAMOL (CODEINE PHOSPHATE/PARACETAMOL)
     Route: 048
  33. COCODAMOL [Suspect]
     Active Substance: ACETAMINOPHEN\CODEINE PHOSPHATE
     Dosage: UNK; CO-CODAMOL (CODEINE PHOSPHATE 30 MG/ PARACETAMOL 500 MG) EFFERVESCENT TABLET
     Route: 048
  34. COCODAMOL [Suspect]
     Active Substance: ACETAMINOPHEN\CODEINE PHOSPHATE
     Dosage: UNK, (CODEINE PHOSPHATE 30 MG/ PARACETAMOL)
     Route: 048
  35. COCODAMOL [Suspect]
     Active Substance: ACETAMINOPHEN\CODEINE PHOSPHATE
     Dosage: UNK, (CODEINE PHOSPHATE 30 MG/ PARACETAMOL)
     Route: 048
  36. COCODAMOL [Suspect]
     Active Substance: ACETAMINOPHEN\CODEINE PHOSPHATE
     Dosage: UNK (CODEINE PHOSPHATE 30 MG/ PARACETAMOL 500 MG)
     Route: 048
  37. COCODAMOL [Suspect]
     Active Substance: ACETAMINOPHEN\CODEINE PHOSPHATE
     Dosage: UNK (CODEINE PHOSPHATE 30 MG/ PARACETAMOL)
     Route: 048
  38. COCODAMOL [Suspect]
     Active Substance: ACETAMINOPHEN\CODEINE PHOSPHATE
     Dosage: UNK (CODEINE PHOSPHATE 30 MG/ PARACETAMOL 500 MG)
     Route: 048
  39. COCODAMOL [Suspect]
     Active Substance: ACETAMINOPHEN\CODEINE PHOSPHATE
     Dosage: UNK (CODEINE PHOSPHATE 30 MG/ PARACETAMOL 500 MG)
     Route: 048
  40. COCODAMOL [Suspect]
     Active Substance: ACETAMINOPHEN\CODEINE PHOSPHATE
     Dosage: UNK (CODEINE PHOSPHATE 30 MG/ PARACETAMOL 500 MG)
     Route: 048
  41. COCODAMOL [Suspect]
     Active Substance: ACETAMINOPHEN\CODEINE PHOSPHATE
     Dosage: UNK, (CODEINE PHOSPHATE 30 MG/ PARACETAMOL 500 MG)
     Route: 065
  42. ESOMEPRAZOLE [Suspect]
     Active Substance: ESOMEPRAZOLE
     Indication: Barrett^s oesophagus
     Dosage: UNK
     Route: 065
  43. ESOMEPRAZOLE [Suspect]
     Active Substance: ESOMEPRAZOLE
     Indication: Oesophagitis
     Dosage: UNK
     Route: 048
  44. ESOMEPRAZOLE [Suspect]
     Active Substance: ESOMEPRAZOLE
     Dosage: UNK (ESOMEPRAZOLE MAGNESIUM FOR ESOPHAGITIS)
     Route: 065
  45. ESOMEPRAZOLE [Suspect]
     Active Substance: ESOMEPRAZOLE
     Dosage: UNK (ESOMEPRAZOLE MAGNESIUM FOR BARRETT^S ESOPHAGUS), CAPSULE
     Route: 048
  46. ESOMEPRAZOLE [Suspect]
     Active Substance: ESOMEPRAZOLE
     Dosage: UNK (ESOMEPRAZOLE MAGNESIUM)
     Route: 065
  47. ESOMEPRAZOLE [Suspect]
     Active Substance: ESOMEPRAZOLE
     Dosage: UNK (ESOMEPRAZOLE MAGNESIUM)
     Route: 065
  48. ESOMEPRAZOLE [Suspect]
     Active Substance: ESOMEPRAZOLE
     Dosage: UNK (ESOMEPRAZOLE MAGNESIUM)
     Route: 065
  49. ESOMEPRAZOLE [Suspect]
     Active Substance: ESOMEPRAZOLE
     Dosage: UNK
     Route: 065
  50. ESOMEPRAZOLE [Suspect]
     Active Substance: ESOMEPRAZOLE
     Dosage: UNK (CAPSULE)
     Route: 048
  51. ESOMEPRAZOLE [Suspect]
     Active Substance: ESOMEPRAZOLE
     Dosage: UNK, (CAPSULE)
     Route: 065
  52. ESOMEPRAZOLE [Suspect]
     Active Substance: ESOMEPRAZOLE
     Dosage: UNK, (CAPSULE)
     Route: 065
  53. ESOMEPRAZOLE [Suspect]
     Active Substance: ESOMEPRAZOLE
     Dosage: UNK,(CAPSULE)
     Route: 065
  54. ESOMEPRAZOLE [Suspect]
     Active Substance: ESOMEPRAZOLE
     Dosage: UNK,(CAPSULE)
     Route: 065
  55. ESOMEPRAZOLE [Suspect]
     Active Substance: ESOMEPRAZOLE
     Dosage: UNK, (CAPSULE)
     Route: 065
  56. COSENTYX [Suspect]
     Active Substance: SECUKINUMAB
     Indication: Ankylosing spondylitis
     Dosage: 300 MILLIGRAM; (PRE FILLED SYRINGE (DEVICE))/SOLUTION FOR INJECTION
     Route: 058
     Dates: start: 20211011
  57. COSENTYX [Suspect]
     Active Substance: SECUKINUMAB
     Dosage: 150 MILLIGRAM; UNK, SOLUTION FOR INJECTION
     Route: 058
     Dates: start: 202109
  58. COSENTYX [Suspect]
     Active Substance: SECUKINUMAB
     Dosage: 300 MILLIGRAM, SOLUTION FOR INJECTION
     Route: 058
     Dates: start: 20210111

REACTIONS (12)
  - Vitamin B12 deficiency [Unknown]
  - Eructation [Unknown]
  - Oropharyngeal discomfort [Unknown]
  - Neck pain [Unknown]
  - Regurgitation [Unknown]
  - Barrett^s oesophagus [Unknown]
  - Condition aggravated [Unknown]
  - Acne [Not Recovered/Not Resolved]
  - Arthralgia [Not Recovered/Not Resolved]
  - Abdominal distension [Unknown]
  - Dyspepsia [Unknown]
  - Off label use [Unknown]

NARRATIVE: CASE EVENT DATE: 20211201
